FAERS Safety Report 22050582 (Version 3)
Quarter: 2024Q3

REPORT INFORMATION
  Report Type: Spontaneous
  Country: SG (occurrence: SG)
  Receive Date: 20230301
  Receipt Date: 20240723
  Transmission Date: 20241017
  Serious: Yes (Death, Hospitalization, Other)
  Sender: ROCHE
  Company Number: SG-ROCHE-3292679

PATIENT
  Age: 74 Year
  Sex: Male

DRUGS (2)
  1. AVASTIN [Suspect]
     Active Substance: BEVACIZUMAB
     Indication: Colorectal cancer
     Route: 065
  2. AVASTIN [Suspect]
     Active Substance: BEVACIZUMAB
     Indication: Neoplasm

REACTIONS (4)
  - Neoplasm progression [Unknown]
  - Asthenia [Unknown]
  - Peripheral swelling [Unknown]
  - Death [Fatal]

NARRATIVE: CASE EVENT DATE: 20240130
